FAERS Safety Report 24180656 (Version 2)
Quarter: 2024Q3

REPORT INFORMATION
  Report Type: Spontaneous
  Country: NO (occurrence: NO)
  Receive Date: 20240806
  Receipt Date: 20240819
  Transmission Date: 20241016
  Serious: Yes (Other)
  Sender: MYLAN
  Company Number: NO-PHARMALEX-2024000641

PATIENT
  Age: 29 Year
  Sex: Female

DRUGS (2)
  1. TRAMADOL [Suspect]
     Active Substance: TRAMADOL\TRAMADOL HYDROCHLORIDE
     Indication: Product used for unknown indication
     Dosage: UNK
     Route: 065
  2. ALCOHOL [Concomitant]
     Active Substance: ALCOHOL
     Indication: Product used for unknown indication
     Dosage: UNK
     Route: 065

REACTIONS (13)
  - Syncope [Unknown]
  - Drug abuse [Unknown]
  - Abdominal pain upper [Unknown]
  - Pyrexia [Unknown]
  - Disorientation [Unknown]
  - Hangover [Unknown]
  - Malaise [Unknown]
  - Vomiting [Unknown]
  - Diarrhoea [Unknown]
  - Nausea [Unknown]
  - Fatigue [Unknown]
  - Therapeutic product effect variable [Unknown]
  - Accidental exposure to product [Unknown]
